FAERS Safety Report 4388221-8 (Version None)
Quarter: 2004Q2

REPORT INFORMATION
  Report Type: 
  Country: None (occurrence: None)
  Receive Date: 20040629
  Receipt Date: 20040614
  Transmission Date: 20050107
  Serious: Yes (Death)
  Sender: FDA-Public Use
  Company Number: CHNY2004JP00991

PATIENT
  Age: 73 Year
  Sex: Female

DRUGS (6)
  1. PURSENNID (NCH)(SENNA GLYCOSIDES (CA SALTS OF PURIFIED SENNA EXTRACT) [Suspect]
     Dosage: ORAL
     Route: 048
  2. AMLODIPINE BESYLATE [Suspect]
  3. SULFAMETHOXAZOLE + TRIMETHOPRIM [Suspect]
  4. CEFEPIME HYDROCHLORIDE [Concomitant]
  5. MEROPENEM [Concomitant]
  6. MINOCYCLINE HCL [Concomitant]

REACTIONS (6)
  - DRUG HYPERSENSITIVITY [None]
  - HTLV-1 ANTIBODY POSITIVE [None]
  - NOCARDIOSIS [None]
  - OPPORTUNISTIC INFECTION [None]
  - PITYRIASIS LICHENOIDES ET VARIOLIFORMIS ACUTA [None]
  - VIRAL INFECTION [None]
